FAERS Safety Report 10564238 (Version 1)
Quarter: 2014Q4

REPORT INFORMATION
  Report Type: Spontaneous
  Country: IE (occurrence: IE)
  Receive Date: 20141104
  Receipt Date: 20141104
  Transmission Date: 20150529
  Serious: Yes (Hospitalization, Other)
  Sender: FDA-Public Use
  Company Number: PHFR2014IE007620

PATIENT
  Age: 64 Year
  Sex: Male

DRUGS (1)
  1. TASIGNA [Suspect]
     Active Substance: NILOTINIB
     Indication: CHRONIC MYELOID LEUKAEMIA
     Route: 048

REACTIONS (2)
  - Radiation injury [Not Recovered/Not Resolved]
  - Radiation proctopathy [Not Recovered/Not Resolved]

NARRATIVE: CASE EVENT DATE: 20140829
